FAERS Safety Report 9450549 (Version 1)
Quarter: 2013Q3

REPORT INFORMATION
  Report Type: Spontaneous
  Country: FR (occurrence: FR)
  Receive Date: 20130809
  Receipt Date: 20130809
  Transmission Date: 20140515
  Serious: Yes (Hospitalization)
  Sender: FDA-Public Use
  Company Number: -SANOFI-AVENTIS-BMS18822106

PATIENT
  Age: 80 Year
  Sex: Female

DRUGS (7)
  1. COAPROVEL [Suspect]
     Indication: HYPERTENSION
     Dosage: DOSE:1 UNIT(S)
     Route: 048
     Dates: end: 20130324
  2. METFORMIN [Suspect]
     Indication: DIABETES MELLITUS
     Dosage: DOSE:3 UNIT(S)
     Route: 048
     Dates: end: 20130324
  3. KALEORID [Suspect]
     Indication: PRODUCT USED FOR UNKNOWN INDICATION
     Dosage: STRENGTH: 1000 MG PROLONGED TABLET
     Route: 048
     Dates: end: 20130324
  4. VOLTARENE [Suspect]
     Indication: OSTEOARTHRITIS
     Route: 048
     Dates: end: 20130324
  5. ALPRESS [Suspect]
     Indication: PRODUCT USED FOR UNKNOWN INDICATION
     Dosage: STRENGTH: 1000 MG
     Route: 065
     Dates: end: 20130324
  6. ATORVASTATIN [Concomitant]
     Dates: end: 20130324
  7. GLICLAZIDE [Concomitant]
     Dates: end: 20130324

REACTIONS (7)
  - Oedema peripheral [Recovering/Resolving]
  - Blood creatinine increased [Recovering/Resolving]
  - Proteinuria [Recovering/Resolving]
  - Blood urea increased [Recovering/Resolving]
  - Hyperkalaemia [Recovered/Resolved]
  - Lactic acidosis [Recovered/Resolved]
  - Renal failure acute [Recovering/Resolving]
